FAERS Safety Report 7666690-5 (Version None)
Quarter: 2011Q3

REPORT INFORMATION
  Report Type: 
  Country: None (occurrence: None)
  Receive Date: 20110806
  Receipt Date: 20110525
  Transmission Date: 20111222
  Serious: No
  Sender: FDA-Public Use
  Company Number: US-ABBOTT-11P-163-0724793-00

PATIENT
  Sex: Male
  Weight: 83.99 kg

DRUGS (5)
  1. NIASPAN [Suspect]
     Indication: HIGH DENSITY LIPOPROTEIN DECREASED
     Dosage: AT BEDTIME
     Dates: start: 20110508
  2. ASPIRIN [Concomitant]
  3. NIASPAN [Suspect]
     Indication: BLOOD CHOLESTEROL INCREASED
  4. ASPIRIN [Concomitant]
     Indication: PROPHYLAXIS
  5. LISINOPRIL [Concomitant]
     Indication: HYPERTENSION
     Dosage: 20/25MG DAILY

REACTIONS (6)
  - FEELING HOT [None]
  - PARAESTHESIA [None]
  - OEDEMA PERIPHERAL [None]
  - FLUSHING [None]
  - PRURITUS [None]
  - ERYTHEMA [None]
